FAERS Safety Report 9459234 (Version 2)
Quarter: 2013Q3

REPORT INFORMATION
  Report Type: Spontaneous
  Country: JP (occurrence: JP)
  Receive Date: 20130814
  Receipt Date: 20130903
  Transmission Date: 20140515
  Serious: Yes (Hospitalization)
  Sender: FDA-Public Use
  Company Number: JP-B.I. PHARMACEUTICALS,INC./RIDGEFIELD-2013-BI-24019NB

PATIENT
  Age: 78 Year
  Sex: Male
  Weight: 43.9 kg

DRUGS (7)
  1. SPIRIVA [Suspect]
     Indication: CHRONIC OBSTRUCTIVE PULMONARY DISEASE
     Dosage: 5 MCG
     Route: 055
     Dates: start: 2011
  2. TRAZENTA [Suspect]
     Indication: TYPE 2 DIABETES MELLITUS
     Dosage: 5 MG
     Route: 048
     Dates: start: 20130802
  3. ERYTHROCIN [Concomitant]
     Dosage: 400 MG
     Route: 048
  4. LYRICA [Concomitant]
     Dosage: 300 MG
     Route: 048
  5. THEODUR [Concomitant]
     Dosage: 200 MG
     Route: 048
  6. AMANTADINE HYDROCHLORIDE [Concomitant]
     Dosage: 100 MG
     Route: 048
  7. MAGMITT [Concomitant]
     Dosage: 990 MG
     Route: 048

REACTIONS (3)
  - Chronic obstructive pulmonary disease [Recovered/Resolved]
  - Hypoglycaemia [Recovered/Resolved]
  - Hypoglycaemia [Recovered/Resolved]
